FAERS Safety Report 5829522-3 (Version None)
Quarter: 2008Q3

REPORT INFORMATION
  Report Type: 
  Country: None (occurrence: None)
  Receive Date: 20080729
  Receipt Date: 20080714
  Transmission Date: 20090109
  Serious: Yes (Death, Hospitalization)
  Sender: FDA-Public Use
  Company Number: 15067

PATIENT
  Age: 58 Year
  Sex: Male
  Weight: 68.0396 kg

DRUGS (3)
  1. MORPHINE SULFATE [Suspect]
     Indication: MUSCULOSKELETAL PAIN
     Dosage: 120 MG TID ORALLY
     Route: 048
     Dates: start: 20070401, end: 20080301
  2. GABAPENTIN [Concomitant]
  3. CYMBALTA [Concomitant]

REACTIONS (3)
  - INCOHERENT [None]
  - MYOCARDIAL INFARCTION [None]
  - PHARMACEUTICAL PRODUCT COMPLAINT [None]
